FAERS Safety Report 11927024 (Version 1)
Quarter: 2016Q1

REPORT INFORMATION
  Report Type: Spontaneous
  Country: FR (occurrence: FR)
  Receive Date: 20160119
  Receipt Date: 20160119
  Transmission Date: 20160526
  Serious: Yes (Other)
  Sender: FDA-Public Use
  Company Number: FR-NOVOPROD-475559

PATIENT
  Age: 70 Year
  Sex: Female

DRUGS (9)
  1. VICTOZA [Suspect]
     Active Substance: LIRAGLUTIDE
     Indication: TYPE 2 DIABETES MELLITUS
     Dosage: UNK
     Route: 065
     Dates: start: 20151022
  2. RILMENIDINE [Concomitant]
     Active Substance: RILMENIDINE
     Dosage: 1 DF, QD
     Route: 065
  3. AMLOR [Concomitant]
     Active Substance: AMLODIPINE BESYLATE
     Dosage: 1 DF, QD
     Route: 065
  4. ALDACTAZINE [Concomitant]
     Active Substance: ALTHIAZIDE\SPIRONOLACTONE
     Dosage: 1 DF, QD (MORNING)
     Route: 065
  5. AMAREL [Concomitant]
     Active Substance: GLIMEPIRIDE
     Indication: TYPE 2 DIABETES MELLITUS
     Dosage: 2 DF, QD (ONE MONTH)
     Route: 065
  6. SIMVASTATINE [Concomitant]
     Active Substance: SIMVASTATIN
     Dosage: 1 DF, QD
     Route: 065
  7. METFORMINE ARROW [Concomitant]
     Active Substance: METFORMIN HYDROCHLORIDE
     Indication: TYPE 2 DIABETES MELLITUS
     Dosage: 3 G, QD
     Route: 048
  8. HYPERIUM [Concomitant]
     Active Substance: RILMENIDINE PHOSPHATE
     Dosage: UNK
     Route: 065
  9. AMLODIPINE [Concomitant]
     Active Substance: AMLODIPINE BESYLATE
     Dosage: 1 DF, QD
     Route: 065

REACTIONS (7)
  - Syncope [Recovering/Resolving]
  - Dysgeusia [Unknown]
  - Gastrooesophageal reflux disease [Unknown]
  - Abdominal pain [Unknown]
  - Weight decreased [Unknown]
  - Decreased appetite [Unknown]
  - Pruritus [Recovered/Resolved]

NARRATIVE: CASE EVENT DATE: 20151022
